FAERS Safety Report 21732146 (Version 1)
Quarter: 2022Q4

REPORT INFORMATION
  Report Type: Spontaneous
  Country: JP (occurrence: JP)
  Receive Date: 20221215
  Receipt Date: 20221215
  Transmission Date: 20230113
  Serious: Yes (Death, Other)
  Sender: FDA-Public Use
  Company Number: JP-ONO-2022JP008027

PATIENT
  Age: 67 Year
  Sex: Male
  Weight: 54.1 kg

DRUGS (14)
  1. YERVOY [Suspect]
     Active Substance: IPILIMUMAB
     Indication: Non-small cell lung cancer recurrent
     Route: 041
     Dates: start: 20211026, end: 20211103
  2. OPDIVO [Suspect]
     Active Substance: NIVOLUMAB
     Indication: Non-small cell lung cancer recurrent
     Dosage: INJECTION
     Route: 041
     Dates: start: 20211026, end: 20211103
  3. CARBOPLATIN [Suspect]
     Active Substance: CARBOPLATIN
     Indication: Non-small cell lung cancer recurrent
     Dates: start: 20211026, end: 20211103
  4. PACLITAXEL [Suspect]
     Active Substance: PACLITAXEL
     Indication: Non-small cell lung cancer recurrent
     Dates: start: 20211026, end: 20211103
  5. ANAMORELIN HYDROCHLORIDE [Suspect]
     Active Substance: ANAMORELIN HYDROCHLORIDE
     Indication: Cachexia
     Route: 048
     Dates: start: 20211103, end: 20211105
  6. LOXOPROFEN SODIUM [Concomitant]
     Active Substance: LOXOPROFEN SODIUM
     Route: 048
     Dates: end: 20211104
  7. LICKLE [Concomitant]
     Active Substance: ISOLEUCINE\LEUCINE\VALINE
     Indication: Hypoalbuminaemia
     Route: 048
     Dates: end: 20211104
  8. BEPOTASTINE BESYLATE [Concomitant]
     Active Substance: BEPOTASTINE BESYLATE
     Indication: Rash
     Route: 048
     Dates: end: 20211104
  9. VITAMINS [Concomitant]
     Active Substance: VITAMINS
     Indication: Vitamin B1 deficiency
     Route: 048
     Dates: end: 20211104
  10. VITAMINS [Concomitant]
     Active Substance: VITAMINS
     Indication: Vitamin B2 deficiency
  11. VITAMINS [Concomitant]
     Active Substance: VITAMINS
     Indication: Folate deficiency
  12. MIROGABALIN BESYLATE [Concomitant]
     Active Substance: MIROGABALIN BESYLATE
     Indication: Neuropathy peripheral
     Route: 048
     Dates: start: 20211103, end: 20211104
  13. CYMBALTA [Concomitant]
     Active Substance: DULOXETINE HYDROCHLORIDE
     Indication: Neuropathy peripheral
     Route: 048
     Dates: end: 20211104
  14. REBAMIPIDE [Concomitant]
     Active Substance: REBAMIPIDE
     Indication: Product used for unknown indication
     Route: 048
     Dates: end: 20211104

REACTIONS (7)
  - Febrile neutropenia [Unknown]
  - Septic shock [Unknown]
  - Immune thrombocytopenia [Unknown]
  - Bacteraemia [Unknown]
  - Subarachnoid haemorrhage [Recovering/Resolving]
  - Fall [Unknown]
  - Malignant neoplasm progression [Fatal]

NARRATIVE: CASE EVENT DATE: 20211103
